FAERS Safety Report 4377168-9 (Version None)
Quarter: 2004Q2

REPORT INFORMATION
  Report Type: 
  Country: None (occurrence: None)
  Receive Date: 20040608
  Receipt Date: 20040526
  Transmission Date: 20050107
  Serious: Yes (Other)
  Sender: FDA-Public Use
  Company Number: HQWYE118526MAY04

PATIENT
  Age: 75 Year
  Sex: Male

DRUGS (1)
  1. CORDAREX (AMIODARONE) [Suspect]
     Indication: VENTRICULAR TACHYCARDIA
     Dosage: 200 MG 1X PER 1 DAY   ORAL
     Route: 048
     Dates: start: 20040401, end: 20040430

REACTIONS (2)
  - CHOLESTASIS [None]
  - IMPLANTABLE DEFIBRILLATOR INSERTION [None]
